FAERS Safety Report 22994777 (Version 4)
Quarter: 2023Q4

REPORT INFORMATION
  Report Type: Report from Study
  Country: US (occurrence: US)
  Receive Date: 20230927
  Receipt Date: 20231215
  Transmission Date: 20240110
  Serious: Yes (Hospitalization, Other)
  Sender: FDA-Public Use
  Company Number: US-ABBVIE-5424312

PATIENT
  Age: 71 Year
  Sex: Male
  Weight: 90.718 kg

DRUGS (1)
  1. SKYRIZI [Suspect]
     Active Substance: RISANKIZUMAB-RZAA
     Indication: Psoriasis
     Dosage: FORM STRENGTH: 150 MILLIGRAM?STOP DATE TEXT: MAY OR APRIL 2023
     Route: 058
     Dates: start: 20220615, end: 202305

REACTIONS (3)
  - Arterial occlusive disease [Recovering/Resolving]
  - Vascular graft complication [Unknown]
  - Vascular graft infection [Unknown]

NARRATIVE: CASE EVENT DATE: 20230913
